FAERS Safety Report 9608438 (Version 1)
Quarter: 2013Q4

REPORT INFORMATION
  Report Type: Spontaneous
  Country: US (occurrence: US)
  Receive Date: 20131009
  Receipt Date: 20131009
  Transmission Date: 20140711
  Serious: No
  Sender: FDA-Public Use
  Company Number: US-BAYER-2013-120348

PATIENT
  Age: 72 Year
  Sex: Male

DRUGS (1)
  1. LEVITRA [Suspect]
     Indication: ERECTILE DYSFUNCTION
     Dosage: 1/2 DF PRN
     Route: 048
     Dates: start: 20110205, end: 20130929

REACTIONS (4)
  - Feeling abnormal [None]
  - Headache [None]
  - Drug ineffective [None]
  - Drug administration error [None]
